FAERS Safety Report 7112447-3 (Version None)
Quarter: 2010Q4

REPORT INFORMATION
  Report Type: 
  Country: None (occurrence: None)
  Receive Date: 20101119
  Receipt Date: 20101111
  Transmission Date: 20110411
  Serious: Yes (Other)
  Sender: FDA-Public Use
  Company Number: CH-PFIZER INC-2010146546

PATIENT
  Age: 57 Year
  Sex: Female

DRUGS (3)
  1. VENLAFAXINE HCL [Suspect]
  2. BENZODIAZEPINE DERIVATIVES [Suspect]
  3. METHADONE [Suspect]

REACTIONS (4)
  - CARDIAC ARREST [None]
  - DRUG TOXICITY [None]
  - GAIT DISTURBANCE [None]
  - MORTON'S NEUROMA [None]
